FAERS Safety Report 17209594 (Version 1)
Quarter: 2019Q4

REPORT INFORMATION
  Report Type: Spontaneous
  Country: US (occurrence: US)
  Receive Date: 20191227
  Receipt Date: 20191227
  Transmission Date: 20200122
  Serious: No
  Sender: FDA-Public Use
  Company Number: US-SA-2019SA358673

PATIENT
  Age: 57 Year
  Sex: Female
  Weight: 85.26 kg

DRUGS (4)
  1. TOPICORT [TRIAMCINOLONE ACETONIDE] [Concomitant]
  2. GOLD BOND ULTIMATE ECZEMA RELIEF [Concomitant]
     Active Substance: OATMEAL
  3. DUPIXENT [Suspect]
     Active Substance: DUPILUMAB
     Indication: DERMATITIS ATOPIC
     Dosage: 300 MG, QOW
     Route: 058
     Dates: start: 201906
  4. CELLCEPT [Concomitant]
     Active Substance: MYCOPHENOLATE MOFETIL\MYCOPHENOLATE MOFETIL HYDROCHLORIDE

REACTIONS (1)
  - Pain [Unknown]
